FAERS Safety Report 9536704 (Version 1)
Quarter: 2013Q3

REPORT INFORMATION
  Report Type: Not Available
  Country: IS (occurrence: IS)
  Receive Date: 20130919
  Receipt Date: 20130919
  Transmission Date: 20140515
  Serious: Yes (Hospitalization)
  Sender: FDA-Public Use
  Company Number: IS-IAC JAPAN XML-GBR-2013-0015642

PATIENT
  Sex: Male

DRUGS (1)
  1. NORSPAN 10 MIKROGRAM/ TIMME DEPOTPLASTER [Suspect]
     Indication: PAIN
     Dosage: 10 MCG, Q1H
     Route: 062

REACTIONS (4)
  - Activities of daily living impaired [Not Recovered/Not Resolved]
  - Drug ineffective [Not Recovered/Not Resolved]
  - Decreased appetite [Not Recovered/Not Resolved]
  - Anxiety [Not Recovered/Not Resolved]
